FAERS Safety Report 7779950-4 (Version None)
Quarter: 2011Q3

REPORT INFORMATION
  Report Type: 
  Country: None (occurrence: None)
  Receive Date: 20110927
  Receipt Date: 20110921
  Transmission Date: 20111222
  Serious: Yes (Life-Threatening)
  Sender: FDA-Public Use
  Company Number: BR-BRISTOL-MYERS SQUIBB COMPANY-16088569

PATIENT
  Age: 77 Year
  Sex: Male

DRUGS (4)
  1. SAXAGLIPTIN [Suspect]
     Indication: TYPE 2 DIABETES MELLITUS
     Route: 048
     Dates: start: 20110324
  2. ASPIRIN [Concomitant]
     Dosage: 1DF={ 100MG
  3. BLINDED: PLACEBO [Suspect]
     Indication: TYPE 2 DIABETES MELLITUS
     Route: 048
     Dates: start: 20110324
  4. NPH INSULIN [Suspect]
     Indication: TYPE 2 DIABETES MELLITUS
     Dosage: 1DF=25 UNIT UNK-12APR11 1DF=20 UNIT 13APR11-ONG.
     Route: 058

REACTIONS (1)
  - HYPOGLYCAEMIA [None]
